FAERS Safety Report 8227449-3 (Version None)
Quarter: 2012Q1

REPORT INFORMATION
  Report Type: 
  Country: None (occurrence: None)
  Receive Date: 20120322
  Receipt Date: 20120314
  Transmission Date: 20120608
  Serious: Yes (Hospitalization)
  Sender: FDA-Public Use
  Company Number: US-BAYER-2012-011533

PATIENT
  Age: 47 Year
  Sex: Female
  Weight: 58.957 kg

DRUGS (7)
  1. AUGMENTIN '125' [Concomitant]
     Indication: PELVIC INFECTION
     Dosage: UNK
     Route: 048
     Dates: start: 20091113
  2. GENTAMICIN [Concomitant]
     Dosage: UNK
     Dates: start: 20091101
  3. IBUPROFEN [Concomitant]
     Indication: PAIN
     Dosage: UNK
     Route: 048
     Dates: start: 20091113
  4. METRONIDAZOLE [Concomitant]
     Indication: PELVIC INFECTION
     Dosage: UNK
     Route: 048
     Dates: start: 20091113
  5. YASMIN [Suspect]
     Indication: PRODUCT USED FOR UNKNOWN INDICATION
     Dosage: UNK
     Route: 048
     Dates: start: 20091201, end: 20100201
  6. YAZ [Suspect]
     Indication: PRODUCT USED FOR UNKNOWN INDICATION
     Dosage: UNK
     Route: 048
     Dates: start: 20091201, end: 20100201
  7. ZOSYN [Concomitant]
     Dosage: UNK
     Dates: start: 20091101

REACTIONS (7)
  - PULMONARY EMBOLISM [None]
  - GENERAL PHYSICAL HEALTH DETERIORATION [None]
  - DEEP VEIN THROMBOSIS [None]
  - EMOTIONAL DISTRESS [None]
  - INJURY [None]
  - ANXIETY [None]
  - PAIN [None]
